FAERS Safety Report 8386502-4 (Version None)
Quarter: 2012Q2

REPORT INFORMATION
  Report Type: 
  Country: None (occurrence: None)
  Receive Date: 20120525
  Receipt Date: 20120521
  Transmission Date: 20120825
  Serious: Yes (Life-Threatening, Other)
  Sender: FDA-Public Use
  Company Number: US-JNJFOC-20120312630

PATIENT
  Sex: Male
  Weight: 140 kg

DRUGS (53)
  1. NOVOLOG [Concomitant]
     Dosage: EVERY EVENING
     Route: 058
     Dates: start: 20070801
  2. SIMCOR [Concomitant]
     Indication: HYPERLIPIDAEMIA
     Route: 048
     Dates: start: 20080801
  3. SINGULAIR [Concomitant]
     Indication: MULTIPLE ALLERGIES
     Route: 048
     Dates: start: 20060401
  4. VANTAS [Concomitant]
     Indication: CANCER HORMONAL THERAPY
     Route: 065
     Dates: start: 20090716
  5. TORSEMIDE [Concomitant]
     Route: 048
     Dates: start: 20100128, end: 20100305
  6. ADVIL [Concomitant]
     Indication: MUSCULOSKELETAL PAIN
     Route: 048
     Dates: start: 20110901, end: 20111202
  7. ALBUTEROL [Concomitant]
     Indication: BRONCHITIS
     Route: 045
     Dates: start: 20120412
  8. LANTUS [Concomitant]
     Indication: DIABETES MELLITUS
     Route: 058
     Dates: start: 20070801
  9. NOVOLOG [Concomitant]
     Indication: DIABETES MELLITUS
     Dosage: EVERY MORNING
     Route: 058
     Dates: start: 20070801
  10. ALLOPURINOL [Concomitant]
     Route: 065
     Dates: start: 20120324, end: 20120412
  11. AVAPRO [Concomitant]
     Indication: HYPERTENSION
     Route: 065
     Dates: start: 20020101, end: 20111230
  12. PREDNISONE TAB [Concomitant]
     Route: 048
     Dates: start: 20120414, end: 20120415
  13. PROAIR HFA [Concomitant]
     Indication: CHRONIC OBSTRUCTIVE PULMONARY DISEASE
     Route: 045
     Dates: start: 20120412
  14. SYMBICORT [Concomitant]
     Indication: CHRONIC OBSTRUCTIVE PULMONARY DISEASE
     Route: 055
     Dates: start: 20120412, end: 20120419
  15. ABIRATERONE ACETATE [Suspect]
     Indication: PROSTATE CANCER METASTATIC
     Route: 048
     Dates: start: 20090716, end: 20120419
  16. PREDNISONE TAB [Suspect]
     Route: 048
     Dates: start: 20090716
  17. CLARINEX [Concomitant]
     Indication: MULTIPLE ALLERGIES
     Route: 048
     Dates: start: 20060401
  18. VANTAS [Concomitant]
     Route: 065
     Dates: start: 20061001
  19. EPLERENONE [Concomitant]
     Indication: OEDEMA
     Route: 048
     Dates: start: 20111119
  20. AZITHROMYCIN [Concomitant]
     Indication: BRONCHITIS
     Route: 048
     Dates: start: 20120412, end: 20120412
  21. ASPIRIN [Concomitant]
     Indication: CARDIOVASCULAR EVENT PROPHYLAXIS
     Route: 048
     Dates: start: 20000101
  22. TETRACYCLINE [Concomitant]
     Indication: ROSACEA
     Route: 048
     Dates: start: 19970131
  23. TORSEMIDE [Concomitant]
     Route: 048
     Dates: start: 20100305, end: 20101230
  24. CALCIUM AND VITAMIN D [Concomitant]
     Indication: MEDICAL DIET
     Route: 048
     Dates: start: 20120312
  25. ALLOPURINOL [Concomitant]
     Indication: HYPERURICAEMIA
     Route: 065
     Dates: start: 20120324, end: 20120412
  26. CALTRATE +D [Concomitant]
     Indication: MEDICAL DIET
     Route: 048
     Dates: start: 20120312, end: 20120518
  27. PREDNISONE TAB [Concomitant]
     Route: 048
     Dates: start: 20120421, end: 20120422
  28. CEFUROXIME [Concomitant]
     Indication: RESPIRATORY TRACT INFECTION
     Route: 048
     Dates: start: 20120402, end: 20120412
  29. HYDROCODONE/CHLORPHENIRAMINE [Concomitant]
     Indication: NASAL CONGESTION
     Route: 065
     Dates: start: 20120403, end: 20120410
  30. PROMETHAZINE W/ CODEINE [Concomitant]
     Indication: COUGH
     Route: 055
     Dates: start: 20120410, end: 20120419
  31. CARTIA XT [Concomitant]
     Indication: HYPERTENSION
     Route: 048
     Dates: start: 20010701
  32. COREG [Concomitant]
     Indication: CORONARY ARTERY DISEASE
     Route: 048
     Dates: start: 20050901
  33. ALLOPURINOL [Concomitant]
     Route: 065
     Dates: start: 20120412, end: 20120518
  34. AZITHROMYCIN [Concomitant]
     Route: 048
     Dates: start: 20120413, end: 20120416
  35. PROMETHAZINE W/ CODEINE [Concomitant]
     Indication: RHINORRHOEA
     Route: 055
     Dates: start: 20120410, end: 20120419
  36. TORSEMIDE [Concomitant]
     Route: 048
     Dates: start: 20110811
  37. ALLOPURINOL [Concomitant]
     Indication: PROPHYLAXIS
     Route: 065
     Dates: start: 20120412, end: 20120518
  38. LASIX [Concomitant]
     Indication: OEDEMA PERIPHERAL
     Route: 048
     Dates: start: 20110501, end: 20111202
  39. PREDNISONE TAB [Concomitant]
     Indication: CHRONIC OBSTRUCTIVE PULMONARY DISEASE
     Route: 048
     Dates: start: 20120419, end: 20120420
  40. ALBUTEROL [Concomitant]
     Indication: CHRONIC OBSTRUCTIVE PULMONARY DISEASE
     Route: 045
     Dates: start: 20120412
  41. HYDROCODONE/CHLORPHENIRAMINE [Concomitant]
     Indication: RHINORRHOEA
     Route: 065
     Dates: start: 20120403, end: 20120410
  42. PREDNISONE TAB [Suspect]
     Indication: PROSTATE CANCER METASTATIC
     Route: 048
     Dates: start: 20120423
  43. CALTRATE +D [Concomitant]
     Route: 048
     Dates: start: 20100128, end: 20111202
  44. ADVIL [Concomitant]
     Indication: BACK PAIN
     Route: 048
     Dates: start: 20110901, end: 20111202
  45. TRAMADOL HCL [Concomitant]
     Indication: CANCER PAIN
     Route: 048
     Dates: start: 20111121, end: 20111230
  46. HYDROCODONE/CHLORPHENIRAMINE [Concomitant]
     Indication: COUGH
     Route: 065
     Dates: start: 20120403, end: 20120410
  47. DUONEB [Concomitant]
     Indication: CHRONIC OBSTRUCTIVE PULMONARY DISEASE
     Route: 065
     Dates: start: 20120410, end: 20120419
  48. ABIRATERONE ACETATE [Suspect]
     Route: 048
  49. PLAVIX [Concomitant]
     Indication: ARTERIOSCLEROSIS
     Route: 048
     Dates: start: 20000901, end: 20120508
  50. TORSEMIDE [Concomitant]
     Indication: HYPERTENSION
     Route: 048
     Dates: start: 20101230, end: 20110811
  51. PREDNISONE TAB [Concomitant]
     Route: 048
     Dates: start: 20120416, end: 20120418
  52. PROMETHAZINE W/ CODEINE [Concomitant]
     Indication: OROPHARYNGEAL PAIN
     Route: 055
     Dates: start: 20120410, end: 20120419
  53. PROMETHAZINE W/ CODEINE [Concomitant]
     Indication: BRONCHITIS
     Route: 055
     Dates: start: 20120410, end: 20120419

REACTIONS (2)
  - BLOOD URIC ACID INCREASED [None]
  - HYPERURICAEMIA [None]
